FAERS Safety Report 8518105-2 (Version None)
Quarter: 2012Q3

REPORT INFORMATION
  Report Type: 
  Country: None (occurrence: None)
  Receive Date: 20120718
  Receipt Date: 20111013
  Transmission Date: 20120928
  Serious: Yes (Other)
  Sender: FDA-Public Use
  Company Number: US-BRISTOL-MYERS SQUIBB COMPANY-16108714

PATIENT
  Age: 46 Year

DRUGS (2)
  1. LOVENOX [Suspect]
  2. COUMADIN [Suspect]

REACTIONS (1)
  - GASTROINTESTINAL HAEMORRHAGE [None]
